FAERS Safety Report 11578411 (Version 1)
Quarter: 2015Q3

REPORT INFORMATION
  Report Type: Spontaneous
  Country: US (occurrence: US)
  Receive Date: 20150930
  Receipt Date: 20150930
  Transmission Date: 20151125
  Serious: Yes (Hospitalization)
  Sender: FDA-Public Use
  Company Number: US-BOIRON INC.-2015BOR00031

PATIENT
  Age: 80 Year
  Sex: Male
  Weight: 74.83 kg

DRUGS (4)
  1. ARNICARE [Suspect]
     Active Substance: ARNICA MONTANA
     Indication: MUSCULOSKELETAL PAIN
     Dosage: THE SIZE OF A 50-CENT PIECE, ONCE TO LEFT SHOULDER
     Route: 061
     Dates: start: 20150912, end: 20150912
  2. GLUCOSAMINE CHONDROITIN [Concomitant]
     Active Substance: CHONDROITIN SULFATE (BOVINE)\GLUCOSAMINE HYDROCHLORIDE
     Dosage: UNK
  3. CENTRUM VITAMIN [Concomitant]
     Dosage: UNK
  4. CRESTOR [Concomitant]
     Active Substance: ROSUVASTATIN CALCIUM
     Dosage: UNK

REACTIONS (8)
  - Syncope [Recovered/Resolved]
  - Confusional state [Recovered/Resolved]
  - Chills [Recovered/Resolved]
  - Back pain [Recovered/Resolved]
  - Pyrexia [Recovered/Resolved]
  - Urinary tract infection [Recovered/Resolved]
  - Infection [Recovered/Resolved]
  - Tremor [Recovered/Resolved]

NARRATIVE: CASE EVENT DATE: 20150912
